FAERS Safety Report 8547203-2 (Version None)
Quarter: 2012Q3

REPORT INFORMATION
  Report Type: 
  Country: None (occurrence: None)
  Receive Date: 20120727
  Receipt Date: 20120227
  Transmission Date: 20120928
  Serious: No
  Sender: FDA-Public Use
  Company Number: US-ASTRAZENECA-2012SE13544

PATIENT
  Age: 53 Year
  Sex: Male
  Weight: 86.2 kg

DRUGS (4)
  1. TRILIPIX [Concomitant]
     Indication: BLOOD CHOLESTEROL ABNORMAL
  2. LUNESTA [Concomitant]
     Indication: SLEEP DISORDER
  3. SEROQUEL [Suspect]
     Indication: THINKING ABNORMAL
     Dosage: 1 TO 2 TABLETS AT NIGHT
     Route: 048
     Dates: start: 20120222, end: 20120222
  4. DIOVAN [Concomitant]
     Indication: BLOOD PRESSURE ABNORMAL

REACTIONS (6)
  - ERECTION INCREASED [None]
  - INSOMNIA [None]
  - NIGHT SWEATS [None]
  - PHOTOPSIA [None]
  - NIGHTMARE [None]
  - OFF LABEL USE [None]
